FAERS Safety Report 12904753 (Version 2)
Quarter: 2016Q4

REPORT INFORMATION
  Report Type: Spontaneous
  Country: US (occurrence: US)
  Receive Date: 20161102
  Receipt Date: 20161115
  Transmission Date: 20170207
  Serious: Yes (Hospitalization)
  Sender: FDA-Public Use
  Company Number: US-ALLERGAN-1674519US

PATIENT
  Age: 67 Year
  Sex: Female

DRUGS (2)
  1. BOTOX [Suspect]
     Active Substance: ONABOTULINUMTOXINA
     Indication: MIGRAINE
     Dosage: 100 UNITS, SINGLE
     Route: 030
     Dates: start: 20161015, end: 20161015
  2. BOTOX [Suspect]
     Active Substance: ONABOTULINUMTOXINA
     Dosage: UNK, SINGLE
     Route: 030
     Dates: start: 20161021, end: 20161021

REACTIONS (10)
  - Blindness unilateral [Not Recovered/Not Resolved]
  - Disorientation [Recovered/Resolved]
  - Drug administered at inappropriate site [Unknown]
  - Facial paresis [Unknown]
  - Swelling face [Unknown]
  - Injection site haemorrhage [Unknown]
  - Mouth swelling [Unknown]
  - Fall [Unknown]
  - Speech disorder [Unknown]
  - Eye swelling [Not Recovered/Not Resolved]

NARRATIVE: CASE EVENT DATE: 201610
